FAERS Safety Report 24242992 (Version 1)
Quarter: 2024Q3

REPORT INFORMATION
  Report Type: Spontaneous
  Country: US (occurrence: None)
  Receive Date: 20240822
  Receipt Date: 20240822
  Transmission Date: 20241016
  Serious: No
  Sender: Public
  Company Number: None

PATIENT
  Age: 48 Year
  Sex: Female
  Weight: 141.75 kg

DRUGS (8)
  1. ZEPBOUND [Suspect]
     Active Substance: TIRZEPATIDE
     Indication: Weight decreased
     Dosage: 1 X A WEEK SUBCUTANEOUS?
     Route: 058
     Dates: start: 20240617, end: 20240717
  2. XYZAL [Concomitant]
  3. BACLOFEN [Concomitant]
  4. plaqunil [Concomitant]
  5. atorvistatin [Concomitant]
  6. ventolin [Concomitant]
  7. PREDNISONE [Concomitant]
  8. MELATONIN [Concomitant]

REACTIONS (1)
  - Injection site hypersensitivity [None]

NARRATIVE: CASE EVENT DATE: 20240715
